FAERS Safety Report 18628975 (Version 3)
Quarter: 2022Q4

REPORT INFORMATION
  Report Type: Spontaneous
  Country: US (occurrence: US)
  Receive Date: 20201217
  Receipt Date: 20221005
  Transmission Date: 20230113
  Serious: Yes (Other)
  Sender: FDA-Public Use
  Company Number: US-PFIZER INC-2020486535

PATIENT
  Age: 67 Year
  Sex: Female

DRUGS (3)
  1. RAPAMUNE [Suspect]
     Active Substance: SIROLIMUS
     Indication: Heart transplant
     Dosage: 3 DF (3 MG, ON MONDAY, WEDNESDAY, FRIDAY AND SATURDAY)
     Route: 048
  2. RAPAMUNE [Suspect]
     Active Substance: SIROLIMUS
     Dosage: 2 DF (2 MG, ALL OTHER DAYS OF THE WEEK)
     Route: 048
  3. RAPAMUNE [Suspect]
     Active Substance: SIROLIMUS
     Dosage: 2 DF, DAILY (2 MG, DAILY)
     Route: 048

REACTIONS (3)
  - Seizure [Unknown]
  - Drug hypersensitivity [Unknown]
  - Off label use [Unknown]
